FAERS Safety Report 24234965 (Version 1)
Quarter: 2024Q3

REPORT INFORMATION
  Report Type: Spontaneous
  Country: US (occurrence: US)
  Receive Date: 20240821
  Receipt Date: 20240821
  Transmission Date: 20241017
  Serious: No
  Sender: NOVARTIS
  Company Number: US-002147023-NVSC2024US168668

PATIENT
  Sex: Female

DRUGS (1)
  1. KESIMPTA [Suspect]
     Active Substance: OFATUMUMAB
     Indication: Product used for unknown indication
     Dosage: 20 MG
     Route: 065

REACTIONS (6)
  - Anxiety [Unknown]
  - Asthenia [Unknown]
  - Affective disorder [Unknown]
  - Mobility decreased [Unknown]
  - Neuralgia [Unknown]
  - COVID-19 [Recovering/Resolving]
